FAERS Safety Report 14560773 (Version 1)
Quarter: 2018Q1

REPORT INFORMATION
  Report Type: Report from Study
  Country: ES (occurrence: ES)
  Receive Date: 20180222
  Receipt Date: 20180222
  Transmission Date: 20180509
  Serious: Yes (Hospitalization)
  Sender: FDA-Public Use
  Company Number: ES-BAUSCH-BL-2018-004674

PATIENT
  Age: 81 Year
  Sex: Female

DRUGS (2)
  1. CEFUROXIMA APOTEX COMPRIMIDOS [Suspect]
     Active Substance: CEFUROXIME
     Indication: RESPIRATORY TRACT INFECTION
     Route: 042
     Dates: start: 20170524, end: 20170530
  2. GENTAMICINA [Suspect]
     Active Substance: GENTAMICIN
     Indication: RESPIRATORY TRACT INFECTION
     Dosage: 80 MG 1 VIAL OF 2 ML
     Route: 042
     Dates: start: 20170524, end: 20170530

REACTIONS (2)
  - Acute kidney injury [Not Recovered/Not Resolved]
  - Drug interaction [None]

NARRATIVE: CASE EVENT DATE: 20170530
